FAERS Safety Report 8248144-0 (Version None)
Quarter: 2012Q1

REPORT INFORMATION
  Report Type: 
  Country: None (occurrence: None)
  Receive Date: 20120330
  Receipt Date: 20120326
  Transmission Date: 20120608
  Serious: Yes (Other)
  Sender: FDA-Public Use
  Company Number: US-PFIZER INC-2012077525

PATIENT
  Sex: Female
  Weight: 104.31 kg

DRUGS (5)
  1. CYMBALTA [Suspect]
     Indication: NEURALGIA
  2. CYMBALTA [Suspect]
     Indication: DEPRESSION
     Dosage: 60 MG, 1X/DAY
     Route: 048
     Dates: end: 20120301
  3. METHADONE [Concomitant]
     Dosage: 35 MG, 1X/DAY
  4. LYRICA [Suspect]
     Indication: DIABETIC NEUROPATHY
     Dosage: 150 MG, 2X/DAY
     Route: 048
     Dates: end: 20120301
  5. LISINOPRIL [Concomitant]

REACTIONS (11)
  - PAIN [None]
  - ARTHRALGIA [None]
  - HYPOKINESIA [None]
  - ACTIVITIES OF DAILY LIVING IMPAIRED [None]
  - BODY HEIGHT DECREASED [None]
  - FEELING ABNORMAL [None]
  - EMOTIONAL DISORDER [None]
  - PAIN IN EXTREMITY [None]
  - GAIT DISTURBANCE [None]
  - DRUG EFFECT DECREASED [None]
  - LIMB DISCOMFORT [None]
